FAERS Safety Report 10167791 (Version 2)
Quarter: 2014Q2

REPORT INFORMATION
  Report Type: Spontaneous
  Country: VE (occurrence: VE)
  Receive Date: 20140512
  Receipt Date: 20140516
  Transmission Date: 20141212
  Serious: Yes (Other)
  Sender: FDA-Public Use
  Company Number: PHHY2014VE057216

PATIENT
  Age: 69 Year
  Sex: Female

DRUGS (6)
  1. STALEVO [Suspect]
     Indication: PARKINSON^S DISEASE
     Dosage: 500 MG, DAILY (200 MG IN THE MORNING, 150 MG AT NOON AND 150 MG AT NIGHT)
     Route: 048
     Dates: start: 2010, end: 201404
  2. STALEVO [Suspect]
     Dosage: 150 MG, TID
     Route: 048
     Dates: start: 201404
  3. STALEVO [Suspect]
     Dosage: 500 MG, DAILY
  4. MIRAPEX [Concomitant]
     Indication: PARKINSON^S DISEASE
     Dosage: UNK UKN, UNK
     Route: 048
  5. QUETIDIN [Concomitant]
     Indication: PARKINSON^S DISEASE
     Dosage: UNK UKN, UNK
     Route: 048
  6. DOMPERIDONE [Concomitant]
     Indication: VOMITING
     Dosage: UNK UKN, UNK
     Route: 048

REACTIONS (3)
  - Muscle spasticity [Recovered/Resolved]
  - Musculoskeletal stiffness [Recovered/Resolved]
  - Tremor [Recovered/Resolved]
